FAERS Safety Report 9174668 (Version 1)
Quarter: 2013Q1

REPORT INFORMATION
  Report Type: Spontaneous
  Country: TR (occurrence: None)
  Receive Date: 20130318
  Receipt Date: 20130318
  Transmission Date: 20140127
  Serious: Yes (Other)
  Sender: FDA-Public Use
  Company Number: FK201300763

PATIENT
  Age: 26 Year
  Sex: Female

DRUGS (1)
  1. CALCIUM GLUCONATE [Suspect]
     Dosage: (NOT OTHERWISE SPECIFIED)
     Route: 042

REACTIONS (2)
  - Dermatitis bullous [None]
  - Infusion site reaction [None]
